FAERS Safety Report 17407936 (Version 1)
Quarter: 2020Q1

REPORT INFORMATION
  Report Type: Spontaneous
  Country: US (occurrence: US)
  Receive Date: 20200212
  Receipt Date: 20200212
  Transmission Date: 20200409
  Serious: No
  Sender: FDA-Public Use
  Company Number: US-PFIZER INC-2020056827

PATIENT
  Age: 85 Year
  Sex: Female

DRUGS (2)
  1. SIMVASTATIN. [Interacting]
     Active Substance: SIMVASTATIN
     Dosage: UNK
  2. XELJANZ XR [Suspect]
     Active Substance: TOFACITINIB CITRATE
     Indication: RHEUMATOID ARTHRITIS
     Dosage: 11 MG, DAILY
     Route: 048
     Dates: start: 20190510

REACTIONS (2)
  - Abdominal discomfort [Unknown]
  - Drug interaction [Unknown]
